FAERS Safety Report 10590456 (Version 3)
Quarter: 2014Q4

REPORT INFORMATION
  Report Type: Report from Study
  Country: DE (occurrence: KR)
  Receive Date: 20141118
  Receipt Date: 20141218
  Transmission Date: 20150529
  Serious: Yes (Death, Hospitalization)
  Sender: FDA-Public Use
  Company Number: DE-ACTELION-A-US2014-108497

PATIENT
  Age: 47 Year
  Sex: Female

DRUGS (4)
  1. VENTAVIS [Suspect]
     Active Substance: ILOPROST
     Indication: PULMONARY ARTERIAL HYPERTENSION
     Dosage: 1ML, 6X/DAY
     Route: 055
     Dates: start: 20141014, end: 20141207
  2. ALDACTONE [Concomitant]
     Active Substance: SPIRONOLACTONE
  3. HERBEN [Concomitant]
  4. ASPIRIN PROTECT [Concomitant]
     Active Substance: ASPIRIN

REACTIONS (6)
  - Death [Fatal]
  - Dyspnoea [Not Recovered/Not Resolved]
  - Dizziness [Unknown]
  - Decreased appetite [Recovered/Resolved]
  - Oedema peripheral [Unknown]
  - Poor quality sleep [Recovered/Resolved]

NARRATIVE: CASE EVENT DATE: 20141022
